FAERS Safety Report 15343398 (Version 3)
Quarter: 2019Q1

REPORT INFORMATION
  Report Type: Report from Study
  Country: US (occurrence: US)
  Receive Date: 20180903
  Receipt Date: 20190311
  Transmission Date: 20190417
  Serious: No
  Sender: FDA-Public Use
  Company Number: PHHY2018US087320

PATIENT
  Sex: Female

DRUGS (1)
  1. COSENTYX [Suspect]
     Active Substance: SECUKINUMAB
     Indication: PSORIASIS
     Dosage: 300 MG, QMO
     Route: 058
     Dates: start: 201804

REACTIONS (4)
  - Nasopharyngitis [Unknown]
  - Psoriasis [Not Recovered/Not Resolved]
  - Sinusitis [Unknown]
  - Drug ineffective [Unknown]
